FAERS Safety Report 8953630 (Version 2)
Quarter: 2013Q1

REPORT INFORMATION
  Report Type: Spontaneous
  Country: FR (occurrence: FR)
  Receive Date: 20121206
  Receipt Date: 20130104
  Transmission Date: 20140127
  Serious: Yes (Hospitalization)
  Sender: FDA-Public Use
  Company Number: FR-ROCHE-1164919

PATIENT
  Age: 61 Year
  Sex: Female

DRUGS (3)
  1. XELODA [Suspect]
     Indication: GALLBLADDER CANCER
     Dosage: 1700 MG IN MORNING AND 1500 MG IN EVENING
     Route: 048
     Dates: start: 20120926, end: 20121122
  2. XELODA [Suspect]
     Dosage: 1150 MG IN MORNING AND EVENING
     Route: 048
  3. ELOXATINE [Concomitant]

REACTIONS (1)
  - Angioedema [Recovering/Resolving]
